FAERS Safety Report 19498963 (Version 1)
Quarter: 2021Q3

REPORT INFORMATION
  Report Type: Report from Study
  Country: CA (occurrence: CA)
  Receive Date: 20210706
  Receipt Date: 20210706
  Transmission Date: 20211014
  Serious: Yes (Other)
  Sender: FDA-Public Use
  Company Number: NVSC2020CA349964

PATIENT

DRUGS (4)
  1. RIXIMYO [Suspect]
     Active Substance: RITUXIMAB
     Dosage: 1000 MG (AT DAY 0 AND 14 EVERY 24 WEEKS)
     Route: 042
  2. METHOTREXATE. [Suspect]
     Active Substance: METHOTREXATE
     Indication: PRODUCT USED FOR UNKNOWN INDICATION
     Dosage: UNK
     Route: 065
  3. CODEINE PHOSPHATE [Suspect]
     Active Substance: CODEINE PHOSPHATE
     Indication: PRODUCT USED FOR UNKNOWN INDICATION
     Dosage: UNK
     Route: 065
  4. RIXIMYO [Suspect]
     Active Substance: RITUXIMAB
     Indication: RHEUMATOID ARTHRITIS
     Dosage: 1000 MG (0 AND 2 WEEKS PER COURSE)
     Route: 042

REACTIONS (3)
  - Drug hypersensitivity [Unknown]
  - Extranodal marginal zone B-cell lymphoma (MALT type) [Unknown]
  - Hepatitis [Unknown]
